FAERS Safety Report 10298820 (Version 1)
Quarter: 2014Q3

REPORT INFORMATION
  Report Type: Spontaneous
  Country: US (occurrence: US)
  Receive Date: 20140711
  Receipt Date: 20140711
  Transmission Date: 20150326
  Serious: Yes (Hospitalization)
  Sender: FDA-Public Use
  Company Number: US-PERRIGO-14US006761

PATIENT
  Age: 13 Year
  Sex: Female
  Weight: 59 kg

DRUGS (6)
  1. NAPROXEN SODIUM 220 MG 368 [Suspect]
     Active Substance: NAPROXEN SODIUM
     Indication: SUICIDE ATTEMPT
     Dosage: UNK, UNK
     Route: 048
  2. ACETAMINOPHEN 650MG ER 544 [Suspect]
     Active Substance: ACETAMINOPHEN
     Indication: SUICIDE ATTEMPT
     Dosage: UNK, UNK
     Route: 048
  3. DIPHENHYDRAMINE [Suspect]
     Active Substance: DIPHENHYDRAMINE
     Indication: SUICIDE ATTEMPT
     Dosage: UNK, UNK
     Route: 048
  4. BUPROPION [Suspect]
     Active Substance: BUPROPION
     Indication: SUICIDE ATTEMPT
     Dosage: UNK, UNK
     Route: 048
  5. CITALOPRAM [Suspect]
     Active Substance: CITALOPRAM HYDROBROMIDE
     Indication: SUICIDE ATTEMPT
     Dosage: UNK, UNK
     Route: 048
  6. OMEPRAZOLE. [Suspect]
     Active Substance: OMEPRAZOLE
     Indication: SUICIDE ATTEMPT
     Route: 048

REACTIONS (24)
  - Hyperthermia [Recovered/Resolved]
  - Muscle rigidity [Recovered/Resolved]
  - Agitation [Recovered/Resolved]
  - Mydriasis [Recovered/Resolved]
  - Anxiety [Recovered/Resolved]
  - Dyskinesia [Recovered/Resolved]
  - Hypertension [Recovered/Resolved]
  - Urinary retention [Recovered/Resolved]
  - Hallucination [Recovered/Resolved]
  - Rhabdomyolysis [Recovered/Resolved]
  - Nasal dryness [Recovered/Resolved]
  - Tremor [Recovered/Resolved]
  - Dermatillomania [Recovered/Resolved]
  - Electrocardiogram QT prolonged [Recovered/Resolved]
  - Toxicity to various agents [Recovered/Resolved]
  - Overdose [Recovered/Resolved]
  - Flushing [Recovered/Resolved]
  - Gastrointestinal sounds abnormal [Recovered/Resolved]
  - Clonus [Recovered/Resolved]
  - Tachycardia [Recovered/Resolved]
  - Tachypnoea [Recovered/Resolved]
  - Myoclonus [Recovered/Resolved]
  - Hypohidrosis [Recovered/Resolved]
  - Disorientation [Recovered/Resolved]
